FAERS Safety Report 23526081 (Version 2)
Quarter: 2024Q1

REPORT INFORMATION
  Report Type: Spontaneous
  Country: US (occurrence: US)
  Receive Date: 20240215
  Receipt Date: 20240328
  Transmission Date: 20240410
  Serious: Yes (Death, Hospitalization, Other)
  Sender: FDA-Public Use
  Company Number: US-AMGEN-USASP2024028991

PATIENT
  Age: 78 Year
  Sex: Male

DRUGS (3)
  1. TAVNEOS [Suspect]
     Active Substance: AVACOPAN
     Indication: Granulomatosis with polyangiitis
     Dosage: 30 MILLIGRAM, BID ( 30MG ORALLY TWICE A DAY)
     Route: 048
     Dates: start: 20220721
  2. TAVNEOS [Suspect]
     Active Substance: AVACOPAN
     Dosage: 30 MILLIGRAM, BID ( 30MG ORALLY TWICE A DAY)
     Route: 048
  3. TAVNEOS [Suspect]
     Active Substance: AVACOPAN
     Dosage: 30 MILLIGRAM, BID ( 30MG ORALLY TWICE A DAY)
     Route: 048
     Dates: end: 202403

REACTIONS (4)
  - Death [Fatal]
  - Infection [Unknown]
  - Gastrointestinal haemorrhage [Unknown]
  - Sepsis [Unknown]

NARRATIVE: CASE EVENT DATE: 20240101
